FAERS Safety Report 9636149 (Version 1)
Quarter: 2013Q4

REPORT INFORMATION
  Report Type: Spontaneous
  Country: DE (occurrence: None)
  Receive Date: 20131017
  Receipt Date: 20131017
  Transmission Date: 20140711
  Serious: Yes (Death)
  Sender: FDA-Public Use
  Company Number: B0930334A

PATIENT
  Sex: 0

DRUGS (3)
  1. MELPHALAN (FORMULATION UNKNOWN) (GENERIC) (MELPHALAN) [Suspect]
     Indication: AMYLOIDOSIS
     Dosage: 15 MG/KG/ ORAL
     Route: 048
  2. DEXAMETHASONE [Suspect]
     Indication: AMYLOIDOSIS
     Route: 048
  3. LENALIDOMIDE [Suspect]
     Indication: AMYLOIDOSIS

REACTIONS (1)
  - Toxicity to various agents [None]
